FAERS Safety Report 8618036-3 (Version None)
Quarter: 2012Q3

REPORT INFORMATION
  Report Type: 
  Country: None (occurrence: None)
  Receive Date: 20120824
  Receipt Date: 20120206
  Transmission Date: 20120928
  Serious: No
  Sender: FDA-Public Use
  Company Number: US-ASTRAZENECA-2012SE07938

PATIENT
  Age: 53 Year
  Sex: Female
  Weight: 118.4 kg

DRUGS (1)
  1. SYMBICORT [Suspect]
     Indication: ASTHMA
     Dosage: 160/4.5 MCG, BID (TWO TIMES A DAY)
     Route: 055

REACTIONS (7)
  - ONYCHOCLASIS [None]
  - AFFECT LABILITY [None]
  - BLISTER [None]
  - BRONCHITIS [None]
  - RASH [None]
  - HEART RATE INCREASED [None]
  - BLOOD PRESSURE INCREASED [None]
